FAERS Safety Report 10445602 (Version 1)
Quarter: 2014Q3

REPORT INFORMATION
  Report Type: Spontaneous
  Country: US (occurrence: US)
  Receive Date: 20140908
  Receipt Date: 20140908
  Transmission Date: 20150326
  Serious: No
  Sender: FDA-Public Use
  Company Number: US-BRISTOL-MYERS SQUIBB COMPANY-20743118

PATIENT
  Age: 21 Year
  Sex: Male
  Weight: 99.77 kg

DRUGS (4)
  1. ABILIFY [Suspect]
     Active Substance: ARIPIPRAZOLE
     Indication: ANXIETY
     Dosage: AS 5MG AND 1/2 OF A 2MG TABLET
  2. ABILIFY [Suspect]
     Active Substance: ARIPIPRAZOLE
     Indication: OBSESSIVE-COMPULSIVE DISORDER
     Dosage: AS 5MG AND 1/2 OF A 2MG TABLET
  3. FLUVOXAMINE [Concomitant]
     Active Substance: FLUVOXAMINE
     Dosage: 1/2 OF 100MG
  4. LORAZEPAM. [Concomitant]
     Active Substance: LORAZEPAM

REACTIONS (5)
  - Depression [Unknown]
  - Vitreous floaters [Unknown]
  - Off label use [Unknown]
  - Neck pain [Unknown]
  - Wrong technique in drug usage process [Unknown]
